FAERS Safety Report 20406186 (Version 1)
Quarter: 2022Q1

REPORT INFORMATION
  Report Type: Report from Study
  Country: US (occurrence: US)
  Receive Date: 20220131
  Receipt Date: 20220131
  Transmission Date: 20220424
  Serious: Yes (Hospitalization)
  Sender: FDA-Public Use
  Company Number: US-SA-2022SA018863

PATIENT

DRUGS (1)
  1. LIDOCAINE [Suspect]
     Active Substance: LIDOCAINE
     Indication: Pain management
     Dosage: 1-2 MG/KG/H, NOT TO EXCEED THE MAXIMUM OF 300 MG/H
     Route: 042

REACTIONS (2)
  - Orthostatic hypotension [Unknown]
  - Overdose [Unknown]
